FAERS Safety Report 7579840-6 (Version None)
Quarter: 2011Q2

REPORT INFORMATION
  Report Type: 
  Country: None (occurrence: None)
  Receive Date: 20110629
  Receipt Date: 20110617
  Transmission Date: 20111010
  Serious: Yes (Other)
  Sender: FDA-Public Use
  Company Number: FR-ELI_LILLY_AND_COMPANY-FR201106005046

PATIENT
  Age: 60 Year
  Sex: Male

DRUGS (5)
  1. ALIMTA [Suspect]
     Indication: LUNG NEOPLASM MALIGNANT
     Dosage: UNK
     Route: 042
     Dates: start: 20110324
  2. TRAMADOL HCL [Concomitant]
     Dosage: 200 MG, UNKNOWN
     Route: 065
  3. ALIMTA [Suspect]
     Dosage: UNK
     Route: 042
     Dates: start: 20110427
  4. ALIMTA [Suspect]
     Dosage: UNK, UNKNOWN
     Route: 042
     Dates: start: 20110518
  5. AUGMENTIN '125' [Concomitant]
     Dosage: UNK, UNKNOWN
     Route: 065

REACTIONS (1)
  - CHONDROCALCINOSIS [None]
